FAERS Safety Report 4311106-X (Version None)
Quarter: 2004Q1

REPORT INFORMATION
  Report Type: 
  Country: None (occurrence: None)
  Receive Date: 20040302
  Receipt Date: 20040218
  Transmission Date: 20041129
  Serious: Yes (Hospitalization)
  Sender: FDA-Public Use
  Company Number: 200329118BWH

PATIENT
  Age: 45 Year
  Sex: Female
  Weight: 68.0396 kg

DRUGS (4)
  1. CIPRO [Suspect]
     Indication: URINARY TRACT INFECTION
     Dosage: 1000 MG, TOTAL DAILY, ORAL
     Route: 048
     Dates: start: 20031028, end: 20031107
  2. MACROBID [Suspect]
     Dosage: ORAL
     Route: 048
     Dates: start: 20031108, end: 20031121
  3. ADVIL [Concomitant]
  4. CITRATE OF MAGNESIA [Concomitant]

REACTIONS (11)
  - BALANCE DISORDER [None]
  - CONSTIPATION [None]
  - FEELING ABNORMAL [None]
  - GAIT DISTURBANCE [None]
  - HYPOAESTHESIA [None]
  - INFECTION [None]
  - MYELITIS TRANSVERSE [None]
  - NEUROPATHIC PAIN [None]
  - NEUROPATHY [None]
  - SENSORY DISTURBANCE [None]
  - SENSORY LOSS [None]
